FAERS Safety Report 5262419-9 (Version None)
Quarter: 2007Q1

REPORT INFORMATION
  Report Type: 
  Country: None (occurrence: None)
  Receive Date: 20061219
  Receipt Date: 20060622
  Transmission Date: 20070707
  Serious: Yes (Disabling)
  Sender: FDA-Public Use
  Company Number: 35693

PATIENT

DRUGS (1)
  1. BSS PLUS [Suspect]
     Indication: SURGERY
     Dates: start: 20060614, end: 20060614

REACTIONS (2)
  - CORNEAL OEDEMA [None]
  - PUPIL FIXED [None]
